FAERS Safety Report 9184049 (Version 1)
Quarter: 2013Q1

REPORT INFORMATION
  Report Type: Spontaneous
  Country: US (occurrence: US)
  Receive Date: 20130322
  Receipt Date: 20130322
  Transmission Date: 20140127
  Serious: Yes (Hospitalization)
  Sender: FDA-Public Use
  Company Number: US-BRISTOL-MYERS SQUIBB COMPANY-16718165

PATIENT
  Age: 71 Year
  Sex: Female

DRUGS (1)
  1. ERBITUX [Suspect]
     Indication: HEAD AND NECK CANCER
     Dosage: 470MG WKLY?ROUTE: PORT
     Dates: start: 20120501, end: 20120529

REACTIONS (2)
  - Dermatitis acneiform [Recovered/Resolved]
  - Radiation skin injury [Recovered/Resolved]
